FAERS Safety Report 10997956 (Version 1)
Quarter: 2015Q2

REPORT INFORMATION
  Report Type: Spontaneous
  Country: US (occurrence: US)
  Receive Date: 20150408
  Receipt Date: 20150408
  Transmission Date: 20150821
  Serious: No
  Sender: FDA-Public Use
  Company Number: US-BANPHARM-20143331

PATIENT
  Age: 68 Year
  Sex: Female
  Weight: 72.57 kg

DRUGS (5)
  1. HIGH BLOOD PRESSURE PILL [Concomitant]
     Active Substance: UNSPECIFIED INGREDIENT
  2. HIGH CHOLESTEROL PILL [Concomitant]
  3. ALEVE [Suspect]
     Active Substance: NAPROXEN SODIUM
     Indication: PAIN
     Dosage: ONCE DAILY,
  4. MEDICATIONS FOR DIABETES [Concomitant]
     Active Substance: UNSPECIFIED INGREDIENT
  5. ALEVE [Suspect]
     Active Substance: NAPROXEN SODIUM
     Indication: PAIN
     Dosage: ONCE DAILY,
     Route: 048

REACTIONS (1)
  - Drug ineffective [Unknown]

NARRATIVE: CASE EVENT DATE: 20141224
